FAERS Safety Report 5145313-3 (Version None)
Quarter: 2006Q4

REPORT INFORMATION
  Report Type: 
  Country: None (occurrence: None)
  Receive Date: 20061101
  Receipt Date: 20061020
  Transmission Date: 20070319
  Serious: Yes (Other)
  Sender: FDA-Public Use
  Company Number: 2006S1000163

PATIENT
  Age: 35 Year
  Sex: Female

DRUGS (1)
  1. SORIATANE [Suspect]
     Indication: PSORIASIS
     Dosage: PO
     Route: 048
     Dates: start: 20030901, end: 20050201

REACTIONS (3)
  - ABORTION SPONTANEOUS [None]
  - DRUG EXPOSURE BEFORE PREGNANCY [None]
  - PREGNANCY [None]
